FAERS Safety Report 4407907-X (Version None)
Quarter: 2004Q3

REPORT INFORMATION
  Report Type: 
  Country: None (occurrence: None)
  Receive Date: 20040721
  Receipt Date: 20040507
  Transmission Date: 20050211
  Serious: Yes (Life-Threatening)
  Sender: FDA-Public Use
  Company Number: FR-040704408

PATIENT
  Age: 50 Year
  Sex: Female

DRUGS (4)
  1. PROZAC [Suspect]
     Indication: DEPRESSION
     Dosage: 20 MG/1 DAY
  2. PREVISCAN (FLUINDIONE) [Concomitant]
  3. ZOCOR [Concomitant]
  4. PROPRANOLOL [Concomitant]

REACTIONS (4)
  - CEREBRAL HAEMATOMA [None]
  - DRUG INTERACTION [None]
  - ELECTROCARDIOGRAM T WAVE INVERSION [None]
  - HEMIPARESIS [None]
